FAERS Safety Report 7731342-X (Version None)
Quarter: 2011Q3

REPORT INFORMATION
  Report Type: 
  Country: None (occurrence: None)
  Receive Date: 20110906
  Receipt Date: 20110719
  Transmission Date: 20111222
  Serious: Yes (Other)
  Sender: FDA-Public Use
  Company Number: US-AMGEN-USASP2011036791

PATIENT
  Sex: Male

DRUGS (1)
  1. DENOSUMAB [Suspect]
     Indication: FIBROUS DYSPLASIA OF BONE
     Dosage: 24 MG, QMO

REACTIONS (1)
  - HYPOPHOSPHATAEMIA [None]
